FAERS Safety Report 18670155 (Version 2)
Quarter: 2021Q1

REPORT INFORMATION
  Report Type: Report from Study
  Country: TW (occurrence: TW)
  Receive Date: 20201228
  Receipt Date: 20210111
  Transmission Date: 20210419
  Serious: Yes (Other)
  Sender: FDA-Public Use
  Company Number: TW-AMGEN-TWNSL2020207939

PATIENT
  Age: 99 Year
  Sex: Female

DRUGS (1)
  1. PROLIA [Suspect]
     Active Substance: DENOSUMAB
     Indication: PRODUCT USED FOR UNKNOWN INDICATION
     Dosage: 60 MILLIGRAM, Q6MO
     Route: 065

REACTIONS (4)
  - Brain oedema [Recovering/Resolving]
  - Fall [Recovering/Resolving]
  - Brain neoplasm [Not Recovered/Not Resolved]
  - Swelling [Recovering/Resolving]

NARRATIVE: CASE EVENT DATE: 2020
